FAERS Safety Report 18960596 (Version 3)
Quarter: 2021Q1

REPORT INFORMATION
  Report Type: Report from Study
  Country: US (occurrence: US)
  Receive Date: 20210302
  Receipt Date: 20210320
  Transmission Date: 20210420
  Serious: No
  Sender: FDA-Public Use
  Company Number: NVSC2021US048058

PATIENT
  Age: 51 Year
  Sex: Female

DRUGS (1)
  1. ENTRESTO [Suspect]
     Active Substance: SACUBITRIL\VALSARTAN
     Indication: CARDIAC FAILURE
     Dosage: UNK UNK, BID (100 MG TO 200 MG BID)
     Route: 048
     Dates: start: 20201201

REACTIONS (2)
  - Vision blurred [Unknown]
  - Weight decreased [Unknown]

NARRATIVE: CASE EVENT DATE: 20201201
